FAERS Safety Report 25118003 (Version 1)
Quarter: 2025Q1

REPORT INFORMATION
  Report Type: Spontaneous
  Country: GB (occurrence: GB)
  Receive Date: 20250325
  Receipt Date: 20250325
  Transmission Date: 20250409
  Serious: Yes (Disabling, Other)
  Sender: PFIZER
  Company Number: None

PATIENT
  Age: 39 Year
  Sex: Female
  Weight: 84 kg

DRUGS (1)
  1. METHOTREXATE SODIUM [Suspect]
     Active Substance: METHOTREXATE SODIUM
     Indication: Rheumatoid arthritis
     Dosage: 30 MG, WEEKLY
     Dates: start: 2018, end: 201907

REACTIONS (6)
  - Medication error [Unknown]
  - Alopecia universalis [Not Recovered/Not Resolved]
  - Swelling face [Not Recovered/Not Resolved]
  - Vitiligo [Not Recovered/Not Resolved]
  - Onychomadesis [Recovered/Resolved]
  - Off label use [Unknown]

NARRATIVE: CASE EVENT DATE: 20180101
